FAERS Safety Report 7403317-1 (Version None)
Quarter: 2011Q2

REPORT INFORMATION
  Report Type: 
  Country: None (occurrence: None)
  Receive Date: 20110408
  Receipt Date: 20110401
  Transmission Date: 20111010
  Serious: Yes (Hospitalization)
  Sender: FDA-Public Use
  Company Number: US-US-EMD SERONO, INC.-7051844

PATIENT
  Sex: Male

DRUGS (4)
  1. REBIF [Suspect]
     Indication: PRODUCT USED FOR UNKNOWN INDICATION
     Route: 058
     Dates: start: 20021113, end: 20110103
  2. REBIF [Suspect]
     Route: 058
     Dates: start: 20110214
  3. UNSPECIFIED ORAL DIABETES MEDICATION [Concomitant]
  4. UNSPECIFIED HEART MEDICATION [Concomitant]

REACTIONS (1)
  - CYSTITIS [None]
